FAERS Safety Report 13778552 (Version 2)
Quarter: 2017Q3

REPORT INFORMATION
  Report Type: Report from Study
  Country: US (occurrence: US)
  Receive Date: 20170721
  Receipt Date: 20170727
  Transmission Date: 20171127
  Serious: Yes (Hospitalization)
  Sender: FDA-Public Use
  Company Number: US-ACTELION-A-NJ2017-150223

PATIENT
  Age: 38 Year
  Sex: Female
  Weight: 90.7 kg

DRUGS (5)
  1. REMODULIN [Suspect]
     Active Substance: TREPROSTINIL
     Indication: PRODUCT USED FOR UNKNOWN INDICATION
     Route: 065
  2. LISINOPRIL. [Concomitant]
     Active Substance: LISINOPRIL
  3. TRACLEER [Suspect]
     Active Substance: BOSENTAN
     Indication: PULMONARY ARTERIAL HYPERTENSION
     Dosage: 125 MG, BID
     Route: 048
  4. ADEMPAS [Concomitant]
     Active Substance: RIOCIGUAT
     Route: 065
  5. ADEMPAS [Concomitant]
     Active Substance: RIOCIGUAT
     Dosage: 1 MG, TID
     Route: 065

REACTIONS (10)
  - Oedema peripheral [Unknown]
  - Device infusion issue [Unknown]
  - Presyncope [Unknown]
  - Dyspnoea [Unknown]
  - Diarrhoea [Unknown]
  - Orthostatic hypotension [Recovered/Resolved]
  - Weight increased [Unknown]
  - Headache [Unknown]
  - Dizziness [Unknown]
  - Abdominal distension [Unknown]
